FAERS Safety Report 5071916-0 (Version None)
Quarter: 2006Q3

REPORT INFORMATION
  Report Type: 
  Country: None (occurrence: None)
  Receive Date: 20060804
  Receipt Date: 20060421
  Transmission Date: 20061208
  Serious: Yes (Life-Threatening, Hospitalization, Disabling)
  Sender: FDA-Public Use
  Company Number: JP-ABBOTT-06P-087-0331502-00

PATIENT
  Sex: Male
  Weight: 64.3 kg

DRUGS (28)
  1. HUMIRA [Suspect]
     Indication: RHEUMATOID ARTHRITIS
     Route: 058
     Dates: start: 20041228, end: 20060406
  2. LOXOPROFEN SODIUM [Concomitant]
     Indication: PYREXIA
     Route: 048
     Dates: start: 20060324
  3. CEFDINIR [Concomitant]
     Indication: INFECTION PROPHYLAXIS
     Route: 048
     Dates: start: 20060324, end: 20060331
  4. ACETYLSALICYLIC ACID SRT [Concomitant]
     Indication: MITRAL VALVE INCOMPETENCE
     Route: 048
     Dates: end: 20060504
  5. ACETYLSALICYLIC ACID SRT [Concomitant]
     Indication: ATRIAL FIBRILLATION
  6. METILDIGOXIN [Concomitant]
     Indication: ATRIAL FIBRILLATION
     Route: 048
  7. FUROSEMIDE [Concomitant]
     Indication: MITRAL VALVE INCOMPETENCE
     Route: 048
  8. ALLOPURINOL [Concomitant]
     Indication: HYPERURICAEMIA
     Route: 048
  9. FAMOTIDINE [Concomitant]
     Indication: PROPHYLAXIS AGAINST GASTROINTESTINAL ULCER
     Route: 048
  10. PILSICAINIDE HYDROCHLORIDE [Concomitant]
     Indication: VENTRICULAR EXTRASYSTOLES
     Route: 048
  11. FAROPENEM SODIUM [Concomitant]
     Indication: INFECTION PROPHYLAXIS
     Route: 048
     Dates: start: 20060412, end: 20060418
  12. PREDNISOLONE [Concomitant]
     Indication: RHEUMATOID ARTHRITIS
     Route: 048
     Dates: start: 20040507, end: 20050210
  13. PREDNISOLONE [Concomitant]
     Route: 048
     Dates: start: 20050211, end: 20050323
  14. PREDNISOLONE [Concomitant]
     Route: 048
     Dates: start: 20050324, end: 20050406
  15. PREDNISOLONE [Concomitant]
     Route: 048
     Dates: start: 20050407, end: 20050601
  16. PREDNISOLONE [Concomitant]
     Route: 048
     Dates: start: 20050602, end: 20051123
  17. PREDNISOLONE [Concomitant]
     Route: 048
     Dates: start: 20051124, end: 20060209
  18. PREDNISOLONE [Concomitant]
     Route: 048
     Dates: start: 20060210, end: 20060322
  19. PREDNISOLONE [Concomitant]
     Route: 048
     Dates: start: 20060323, end: 20060501
  20. PREDNISOLONE [Concomitant]
     Route: 048
     Dates: start: 20060502, end: 20060504
  21. PREDNISOLONE [Concomitant]
     Route: 048
     Dates: start: 20060211, end: 20060223
  22. PREDNISOLONE [Concomitant]
     Route: 048
     Dates: start: 20050505
  23. PREDNISOLONE [Concomitant]
     Route: 048
     Dates: start: 20060505
  24. BETAMETHASONE [Concomitant]
     Indication: RHEUMATOID ARTHRITIS
     Route: 048
     Dates: start: 20051029, end: 20051104
  25. ZOLPIDEM TARTRATE [Concomitant]
     Indication: INSOMNIA
     Route: 048
     Dates: start: 20050503
  26. SENNA LEAF [Concomitant]
     Indication: CONSTIPATION
     Dates: start: 20050504
  27. ACETAMINOPHEN [Concomitant]
     Indication: PYREXIA
     Route: 048
     Dates: start: 20050504
  28. MYALONE [Concomitant]
     Indication: PHOTOSENSITIVITY REACTION
     Dates: start: 20050801

REACTIONS (8)
  - ATYPICAL MYCOBACTERIAL INFECTION [None]
  - CEREBRAL INFARCTION [None]
  - ENDOCARDITIS [None]
  - PERIPHERAL ARTERY ANEURYSM [None]
  - RENAL INFARCT [None]
  - SPLENIC HAEMORRHAGE [None]
  - SPLENIC INFARCTION [None]
  - SUBARACHNOID HAEMORRHAGE [None]
